FAERS Safety Report 15934506 (Version 1)
Quarter: 2019Q1

REPORT INFORMATION
  Report Type: Spontaneous
  Country: US (occurrence: US)
  Receive Date: 20190207
  Receipt Date: 20190207
  Transmission Date: 20190417
  Serious: No
  Sender: FDA-Public Use
  Company Number: US-SA-2019SA030138

PATIENT
  Sex: Female

DRUGS (2)
  1. CAPRELSA [Suspect]
     Active Substance: VANDETANIB
     Dosage: 100 MG
     Route: 065
  2. CAPRELSA [Suspect]
     Active Substance: VANDETANIB
     Dosage: 300 MG
     Route: 065

REACTIONS (1)
  - Product supply issue [Unknown]
